FAERS Safety Report 5282554-9 (Version None)
Quarter: 2007Q1

REPORT INFORMATION
  Report Type: 
  Country: None (occurrence: None)
  Receive Date: 20070326
  Receipt Date: 20070313
  Transmission Date: 20070707
  Serious: Yes (Hospitalization)
  Sender: FDA-Public Use
  Company Number: 2007BI004510

PATIENT
  Age: 37 Year
  Sex: Female

DRUGS (1)
  1. AVONEX [Suspect]
     Indication: MULTIPLE SCLEROSIS
     Dosage: 30 UG; QW; IM
     Route: 030
     Dates: start: 19960731

REACTIONS (11)
  - BLOOD DISORDER [None]
  - COLOSTOMY [None]
  - FALL [None]
  - HYPERTENSION [None]
  - INFECTION [None]
  - INFLUENZA LIKE ILLNESS [None]
  - LEG AMPUTATION [None]
  - NEUROGENIC BLADDER [None]
  - STAPHYLOCOCCAL OSTEOMYELITIS [None]
  - THYROID DISORDER [None]
  - TOOTH DISORDER [None]
